FAERS Safety Report 19011984 (Version 1)
Quarter: 2021Q1

REPORT INFORMATION
  Report Type: Spontaneous
  Country: NG (occurrence: NG)
  Receive Date: 20210316
  Receipt Date: 20210316
  Transmission Date: 20210420
  Serious: No
  Sender: FDA-Public Use
  Company Number: None

PATIENT
  Age: 25 Year
  Sex: Female

DRUGS (1)
  1. MICROSTALL GRISEOFULVIN [Suspect]
     Active Substance: GRISEOFULVIN
     Indication: ECZEMA
     Dosage: ?          QUANTITY:1 TABLET(S);?
     Route: 048

REACTIONS (3)
  - Insomnia [None]
  - Illness [None]
  - Headache [None]

NARRATIVE: CASE EVENT DATE: 20210316
